FAERS Safety Report 25734474 (Version 1)
Quarter: 2025Q3

REPORT INFORMATION
  Report Type: Spontaneous
  Country: US (occurrence: US)
  Receive Date: 20250828
  Receipt Date: 20250828
  Transmission Date: 20251021
  Serious: No
  Sender: ROCHE
  Company Number: US-ROCHE-10000366226

PATIENT
  Sex: Female

DRUGS (1)
  1. ACTEMRA [Suspect]
     Active Substance: TOCILIZUMAB
     Indication: Product used for unknown indication
     Dosage: ON THURSDAY^S
     Route: 058

REACTIONS (5)
  - Wrong technique in product usage process [Unknown]
  - Accidental underdose [Unknown]
  - Exposure via skin contact [Unknown]
  - Incorrect dose administered by device [Unknown]
  - No adverse event [Unknown]

NARRATIVE: CASE EVENT DATE: 20250814
